FAERS Safety Report 6320944-3 (Version None)
Quarter: 2009Q3

REPORT INFORMATION
  Report Type: 
  Country: None (occurrence: None)
  Receive Date: 20090822
  Receipt Date: 20081219
  Transmission Date: 20100115
  Serious: No
  Sender: FDA-Public Use
  Company Number: US-ABBOTT-08P-163-0494000-00

PATIENT
  Sex: Female
  Weight: 95.794 kg

DRUGS (12)
  1. NIASPAN [Suspect]
     Indication: BLOOD TRIGLYCERIDES INCREASED
     Dates: start: 20081205
  2. LOVASTATIN [Concomitant]
     Indication: BLOOD CHOLESTEROL INCREASED
     Dates: start: 20030101
  3. HUMALOG [Concomitant]
     Indication: TYPE 2 DIABETES MELLITUS
  4. METFORMIN [Concomitant]
     Indication: TYPE 2 DIABETES MELLITUS
  5. K-DUR [Concomitant]
     Indication: BLOOD POTASSIUM DECREASED
  6. AVANDIA [Concomitant]
     Indication: DIABETES MELLITUS
  7. VERAPAMIL [Concomitant]
     Indication: HEART RATE IRREGULAR
  8. VERAPAMIL [Concomitant]
     Indication: CARDIOMEGALY
  9. LOZOL [Concomitant]
     Indication: FLUID RETENTION
  10. LEVOTHYROXINE SODIUM [Concomitant]
     Indication: HYPOTHYROIDISM
  11. WELLBUTRIN [Concomitant]
     Indication: DEPRESSION
  12. ANTIVERT [Concomitant]
     Indication: DIZZINESS

REACTIONS (1)
  - FLUSHING [None]
